FAERS Safety Report 23296127 (Version 2)
Quarter: 2024Q3

REPORT INFORMATION
  Report Type: Spontaneous
  Country: US (occurrence: US)
  Receive Date: 20231214
  Receipt Date: 20240717
  Transmission Date: 20241016
  Serious: No
  Sender: SANOFI AVENTIS
  Company Number: US-SA-SAC20231208000997

PATIENT
  Age: 24 Year
  Sex: Female

DRUGS (6)
  1. DUPIXENT [Suspect]
     Active Substance: DUPILUMAB
     Indication: Dermatitis atopic
     Dosage: UNK UNK, QOW
     Route: 058
     Dates: start: 20190301
  2. CLOBETASOL [Concomitant]
     Active Substance: CLOBETASOL
     Dosage: UNK
  3. PREDNISONE [Concomitant]
     Active Substance: PREDNISONE
     Dosage: UNK
  4. HYDROCORTISONE [Concomitant]
     Active Substance: HYDROCORTISONE\HYDROCORTISONE ACETATE
     Dosage: UNK
  5. HYDROXYZINE [Concomitant]
     Active Substance: HYDROXYZINE HYDROCHLORIDE
     Dosage: UNK
  6. DERMA-SMOOTHE/FS [Concomitant]
     Active Substance: FLUOCINOLONE ACETONIDE
     Dosage: UNK

REACTIONS (4)
  - Memory impairment [Recovering/Resolving]
  - Rash [Recovered/Resolved]
  - Dermatitis atopic [Recovering/Resolving]
  - Pruritus [Recovering/Resolving]
